FAERS Safety Report 8013286-1 (Version None)
Quarter: 2011Q4

REPORT INFORMATION
  Report Type: 
  Country: None (occurrence: None)
  Receive Date: 20111229
  Receipt Date: 20111220
  Transmission Date: 20120403
  Serious: No
  Sender: FDA-Public Use
  Company Number: PHHY2011JP95545

PATIENT
  Age: 4 Month

DRUGS (2)
  1. MUCODYNE [Concomitant]
     Dosage: UNK UKN, UNK
  2. ZADITEN [Suspect]
     Dosage: UNK UKN, UNK
     Route: 048

REACTIONS (1)
  - OLIGURIA [None]
